FAERS Safety Report 7746758-5 (Version None)
Quarter: 2011Q3

REPORT INFORMATION
  Report Type: 
  Country: None (occurrence: None)
  Receive Date: 20110907
  Receipt Date: 20110308
  Transmission Date: 20111222
  Serious: Yes (Hospitalization)
  Sender: FDA-Public Use
  Company Number: KR-004909

PATIENT
  Sex: Male
  Weight: 60 kg

DRUGS (7)
  1. DEGARELIX (DEGARELIX) (240 MG, 80 MG) [Suspect]
     Indication: PROSTATE CANCER
     Dosage: (240 MG 1X SUBCUTANEOUS), (80 MG 1X/MONTH SUBCUTANEOUS)
     Route: 058
     Dates: start: 20110214, end: 20110214
  2. DEGARELIX (DEGARELIX) (240 MG, 80 MG) [Suspect]
     Indication: PROSTATE CANCER
     Dosage: (240 MG 1X SUBCUTANEOUS), (80 MG 1X/MONTH SUBCUTANEOUS)
     Route: 058
     Dates: start: 20110314
  3. TIROPRAMIDE [Concomitant]
  4. OXYCODONE HCL EXTENDED-RELEASE [Concomitant]
  5. TAMSULOSINE HCL A [Concomitant]
  6. ALMAGATE [Concomitant]
  7. SACCHAROMYCES MEDICINALIS [Concomitant]

REACTIONS (5)
  - SPINAL COMPRESSION FRACTURE [None]
  - PATHOLOGICAL FRACTURE [None]
  - BACK INJURY [None]
  - ACTIVITIES OF DAILY LIVING IMPAIRED [None]
  - METASTATIC PAIN [None]
